FAERS Safety Report 8031803-2 (Version None)
Quarter: 2012Q1

REPORT INFORMATION
  Report Type: 
  Country: None (occurrence: None)
  Receive Date: 20120109
  Receipt Date: 20120106
  Transmission Date: 20120608
  Serious: No
  Sender: FDA-Public Use
  Company Number: US-BAYER-2012-002496

PATIENT

DRUGS (3)
  1. PAIN PATCHES [Concomitant]
  2. IBUPROFEN [Concomitant]
  3. ALEVE (CAPLET) [Suspect]
     Indication: MUSCLE STRAIN
     Route: 048

REACTIONS (2)
  - MUSCLE STRAIN [None]
  - EAR DISCOMFORT [None]
